FAERS Safety Report 16307798 (Version 6)
Quarter: 2019Q3

REPORT INFORMATION
  Report Type: Spontaneous
  Country: US (occurrence: US)
  Receive Date: 20190514
  Receipt Date: 20190703
  Transmission Date: 20191004
  Serious: Yes (Hospitalization, Other)
  Sender: FDA-Public Use
  Company Number: US-UNITED THERAPEUTICS-UNT-2019-008394

PATIENT
  Age: 57 Year
  Sex: Female
  Weight: 92.97 kg

DRUGS (3)
  1. ELIQUIS [Concomitant]
     Active Substance: APIXABAN
     Indication: PRODUCT USED FOR UNKNOWN INDICATION
     Dosage: UNK
     Route: 065
  2. REMODULIN [Suspect]
     Active Substance: TREPROSTINIL
     Indication: PULMONARY ARTERIAL HYPERTENSION
     Dosage: 0.06 ?G/KG, CONTINUING
     Route: 058
     Dates: start: 20180904
  3. REMODULIN [Suspect]
     Active Substance: TREPROSTINIL
     Dosage: UNK UNK, CONTINUING
     Route: 058

REACTIONS (6)
  - Blood potassium increased [Recovered/Resolved]
  - Atrial fibrillation [Recovered/Resolved]
  - Acute respiratory failure [Recovered/Resolved]
  - Product use issue [Unknown]
  - Acute kidney injury [Not Recovered/Not Resolved]
  - Right ventricular failure [Not Recovered/Not Resolved]

NARRATIVE: CASE EVENT DATE: 20190507
